FAERS Safety Report 18800663 (Version 1)
Quarter: 2021Q1

REPORT INFORMATION
  Report Type: Spontaneous
  Country: US (occurrence: US)
  Receive Date: 20210128
  Receipt Date: 20210128
  Transmission Date: 20210419
  Serious: No
  Sender: FDA-Public Use
  Company Number: US-ABBVIE-20K-163-3614783-00

PATIENT
  Age: 71 Year
  Sex: Male
  Weight: 74.91 kg

DRUGS (4)
  1. LUPRON [Suspect]
     Active Substance: LEUPROLIDE ACETATE
     Dosage: FINAL DOSE
     Route: 030
     Dates: start: 201706, end: 201706
  2. LUPRON [Suspect]
     Active Substance: LEUPROLIDE ACETATE
     Dosage: LOADING DOSE
     Route: 030
     Dates: start: 201702, end: 201702
  3. LUPRON [Suspect]
     Active Substance: LEUPROLIDE ACETATE
     Indication: PROSTATE CANCER
     Dosage: INITIAL DOSE
     Route: 030
     Dates: start: 201701, end: 201701
  4. LUPRON [Suspect]
     Active Substance: LEUPROLIDE ACETATE
     Dosage: LOADING DOSE
     Route: 030
     Dates: start: 201703, end: 201703

REACTIONS (9)
  - Amnesia [Not Recovered/Not Resolved]
  - Decreased activity [Unknown]
  - Fatigue [Not Recovered/Not Resolved]
  - Impaired quality of life [Unknown]
  - Depression [Not Recovered/Not Resolved]
  - Cognitive disorder [Not Recovered/Not Resolved]
  - Feeling abnormal [Not Recovered/Not Resolved]
  - Erectile dysfunction [Not Recovered/Not Resolved]
  - Loss of libido [Not Recovered/Not Resolved]

NARRATIVE: CASE EVENT DATE: 201705
